FAERS Safety Report 8573787-4 (Version None)
Quarter: 2012Q3

REPORT INFORMATION
  Report Type: 
  Country: None (occurrence: None)
  Receive Date: 20120806
  Receipt Date: 20120730
  Transmission Date: 20120928
  Serious: Yes (Other)
  Sender: FDA-Public Use
  Company Number: DE-GLAXOSMITHKLINE-D0076155A

PATIENT
  Sex: Male

DRUGS (1)
  1. REQUIP [Suspect]
     Route: 048

REACTIONS (1)
  - SLEEP ATTACKS [None]
